FAERS Safety Report 6114112-8 (Version None)
Quarter: 2009Q1

REPORT INFORMATION
  Report Type: 
  Country: None (occurrence: None)
  Receive Date: 20090312
  Receipt Date: 20080613
  Transmission Date: 20090719
  Serious: No
  Sender: FDA-Public Use
  Company Number: US-ABBOTT-08P-163-0458588-00

PATIENT
  Sex: Male
  Weight: 84.444 kg

DRUGS (3)
  1. DEPAKOTE [Suspect]
     Indication: CONVULSION
     Route: 048
     Dates: start: 20070401, end: 20080612
  2. ADVIR HFA [Concomitant]
     Indication: EMPHYSEMA
     Route: 055
     Dates: start: 20080101
  3. PROAIR HFA [Concomitant]
     Indication: EMPHYSEMA
     Route: 055
     Dates: start: 20080101

REACTIONS (3)
  - CARBON MONOXIDE POISONING [None]
  - CONVULSION [None]
  - DRUG LEVEL DECREASED [None]
